FAERS Safety Report 8945923 (Version 1)
Quarter: 2012Q4

REPORT INFORMATION
  Report Type: 
  Country: US (occurrence: US)
  Receive Date: 20121204
  Receipt Date: 20121204
  Transmission Date: 20130627
  Serious: No
  Sender: FDA-Public Use
  Company Number: US-AMGEN-USASP2012064809

PATIENT
  Age: 29 Year
  Sex: Female

DRUGS (2)
  1. ENBREL [Suspect]
     Indication: RHEUMATOID ARTHRITIS
     Dosage: 50 mg, qwk
     Dates: start: 1998
  2. ENBREL [Suspect]

REACTIONS (5)
  - Cough [Not Recovered/Not Resolved]
  - Retching [Not Recovered/Not Resolved]
  - Vomiting [Not Recovered/Not Resolved]
  - Dysphonia [Not Recovered/Not Resolved]
  - Vocal cord inflammation [Not Recovered/Not Resolved]
